FAERS Safety Report 26106339 (Version 1)
Quarter: 2025Q4

REPORT INFORMATION
  Report Type: Report from Study
  Country: JP (occurrence: JP)
  Receive Date: 20251201
  Receipt Date: 20251201
  Transmission Date: 20260118
  Serious: Yes (Hospitalization, Other)
  Sender: ROCHE
  Company Number: JP-ROCHE-10000447039

PATIENT

DRUGS (1)
  1. SATRALIZUMAB [Suspect]
     Active Substance: SATRALIZUMAB
     Indication: Neuromyelitis optica spectrum disorder
     Route: 065

REACTIONS (4)
  - Leukopenia [Unknown]
  - Skin bacterial infection [Unknown]
  - Pneumonia [Unknown]
  - Infection [Unknown]
